FAERS Safety Report 5475325-1 (Version None)
Quarter: 2007Q4

REPORT INFORMATION
  Report Type: 
  Country: None (occurrence: None)
  Receive Date: 20071001
  Receipt Date: 20070918
  Transmission Date: 20080405
  Serious: Yes (Hospitalization)
  Sender: FDA-Public Use
  Company Number: 2007S1000366

PATIENT
  Age: 68 Year
  Sex: Male
  Weight: 81 kg

DRUGS (18)
  1. CUBICIN [Suspect]
     Indication: OSTEOMYELITIS
     Dosage: 6.2 MG/KG; Q24H; IV
     Route: 042
     Dates: start: 20070807, end: 20070912
  2. LOPRESSOR [Concomitant]
  3. ALLOPURINOL [Concomitant]
  4. PROTONIX [Concomitant]
  5. ZESTRIL [Concomitant]
  6. MS CONTIN [Concomitant]
  7. INSULIN [Concomitant]
  8. LOVENOX [Concomitant]
  9. PERCOCET [Concomitant]
  10. MAGNESIUM SULFATE [Concomitant]
  11. POTASSIUM CHLORIDE [Concomitant]
  12. COLACE [Concomitant]
  13. MIRALAX [Concomitant]
  14. IRON [Concomitant]
  15. DIPHENHYDRAMINE HCL [Concomitant]
  16. TYLENOL (CAPLET) [Concomitant]
  17. VANCOMYCIN [Concomitant]
  18. RIFAMPIN [Concomitant]

REACTIONS (2)
  - EOSINOPHIL COUNT INCREASED [None]
  - INTERSTITIAL LUNG DISEASE [None]
